FAERS Safety Report 7302822-6 (Version None)
Quarter: 2011Q1

REPORT INFORMATION
  Report Type: 
  Country: None (occurrence: None)
  Receive Date: 20110218
  Receipt Date: 20110211
  Transmission Date: 20110831
  Serious: Yes (Other)
  Sender: FDA-Public Use
  Company Number: DE-GILEAD-2011-0036349

PATIENT
  Sex: Male

DRUGS (1)
  1. VIREAD [Suspect]
     Indication: HEPATITIS B
     Route: 048
     Dates: start: 20100501, end: 20110201

REACTIONS (3)
  - DRUG RESISTANCE [None]
  - DRUG INEFFECTIVE [None]
  - HEPATITIS B DNA INCREASED [None]
